FAERS Safety Report 21254410 (Version 1)
Quarter: 2022Q3

REPORT INFORMATION
  Report Type: Spontaneous
  Country: US (occurrence: None)
  Receive Date: 20220825
  Receipt Date: 20220825
  Transmission Date: 20221026
  Serious: No
  Sender: FDA-Public Use
  Company Number: 2022A287009

PATIENT
  Sex: Female
  Weight: 79.4 kg

DRUGS (1)
  1. TAGRISSO [Suspect]
     Active Substance: OSIMERTINIB
     Indication: Non-small cell lung cancer metastatic
     Route: 048
     Dates: start: 202205, end: 20220809

REACTIONS (9)
  - Peripheral swelling [Recovering/Resolving]
  - Fall [Recovering/Resolving]
  - Joint swelling [Recovering/Resolving]
  - Burning sensation [Unknown]
  - Head injury [Unknown]
  - Chest pain [Unknown]
  - Arthralgia [Unknown]
  - Rash [Recovered/Resolved]
  - Diarrhoea [Unknown]
